FAERS Safety Report 6519808-1 (Version None)
Quarter: 2009Q4

REPORT INFORMATION
  Report Type: 
  Country: None (occurrence: None)
  Receive Date: 20091228
  Receipt Date: 20091228
  Transmission Date: 20100525
  Serious: Yes (Other)
  Sender: FDA-Public Use
  Company Number: None

PATIENT
  Age: 64 Year
  Sex: Female
  Weight: 90.7194 kg

DRUGS (3)
  1. MELOXICAM [Suspect]
     Indication: ARTHRITIS
     Dosage: 7.5MG TWICE A DAY PO
     Route: 048
     Dates: start: 20091013, end: 20091207
  2. FLUOCINONIDE [Concomitant]
  3. HALOBETASOL [Concomitant]

REACTIONS (4)
  - DERMATITIS ALLERGIC [None]
  - PAIN OF SKIN [None]
  - PRODUCT SUBSTITUTION ISSUE [None]
  - RASH PRURITIC [None]
